FAERS Safety Report 23547803 (Version 1)
Quarter: 2024Q1

REPORT INFORMATION
  Report Type: Spontaneous
  Country: US (occurrence: None)
  Receive Date: 20240221
  Receipt Date: 20240221
  Transmission Date: 20240410
  Serious: No
  Sender: FDA-Public Use
  Company Number: 2024A029812

PATIENT
  Age: 30419 Day

DRUGS (1)
  1. BREZTRI [Suspect]
     Active Substance: BUDESONIDE\FORMOTEROL\GLYCOPYRROLATE
     Route: 055

REACTIONS (5)
  - Productive cough [Recovered/Resolved with Sequelae]
  - Cough [Unknown]
  - Dysphonia [Recovered/Resolved with Sequelae]
  - Wrong technique in device usage process [Recovered/Resolved]
  - Product label issue [Unknown]

NARRATIVE: CASE EVENT DATE: 20240201
